FAERS Safety Report 23068230 (Version 1)
Quarter: 2023Q4

REPORT INFORMATION
  Report Type: Spontaneous
  Country: US (occurrence: US)
  Receive Date: 20231016
  Receipt Date: 20231016
  Transmission Date: 20240109
  Serious: Yes (Death, Hospitalization, Other)
  Sender: FDA-Public Use
  Company Number: US-APOTEX-2023AP015067

PATIENT
  Age: 52 Year
  Sex: Male

DRUGS (4)
  1. TRAMADOL [Suspect]
     Active Substance: TRAMADOL\TRAMADOL HYDROCHLORIDE
     Indication: Product used for unknown indication
     Dosage: UNK
     Route: 065
  2. TEMAZEPAM [Suspect]
     Active Substance: TEMAZEPAM
     Indication: Product used for unknown indication
     Dosage: UNK
     Route: 065
  3. ACETAMINOPHEN\HYDROCODONE [Concomitant]
     Active Substance: ACETAMINOPHEN\HYDROCODONE
     Indication: Product used for unknown indication
     Dosage: UNK
     Route: 065
  4. INDOMETHACIN [Concomitant]
     Active Substance: INDOMETHACIN
     Indication: Product used for unknown indication
     Dosage: UNK
     Route: 065

REACTIONS (15)
  - Toxicity to various agents [Fatal]
  - Cardiac arrest [Fatal]
  - Atrial fibrillation [Unknown]
  - Unresponsive to stimuli [Unknown]
  - Agonal respiration [Unknown]
  - Anuria [Unknown]
  - Hypothermia [Unknown]
  - Hyperammonaemia [Unknown]
  - Acidosis [Unknown]
  - Leukocytosis [Unknown]
  - Bandaemia [Unknown]
  - Shock [Unknown]
  - Hypotension [Unknown]
  - Tachycardia [Unknown]
  - Hyponatraemia [Unknown]
